FAERS Safety Report 9229545 (Version 2)
Quarter: 2013Q2

REPORT INFORMATION
  Report Type: Spontaneous
  Country: BE (occurrence: BE)
  Receive Date: 20130413
  Receipt Date: 20130429
  Transmission Date: 20140414
  Serious: Yes (Life-Threatening, Hospitalization)
  Sender: FDA-Public Use
  Company Number: BE-B.I. PHARMACEUTICALS,INC./RIDGEFIELD-2013-BL-00173BL

PATIENT
  Age: 80 Year
  Sex: Male
  Weight: 82 kg

DRUGS (6)
  1. PRADAXA [Suspect]
     Indication: ATRIAL FIBRILLATION
     Dosage: 220 MG
     Route: 048
     Dates: start: 201301, end: 20130329
  2. METFORMINE [Concomitant]
  3. CATAPRESSAN [Concomitant]
  4. SIMVASTATINE [Concomitant]
  5. DORMONOCT [Concomitant]
  6. FLUOXETINE [Concomitant]

REACTIONS (1)
  - Hypertensive encephalopathy [Recovered/Resolved]
